FAERS Safety Report 4384034-1 (Version None)
Quarter: 2004Q2

REPORT INFORMATION
  Report Type: 
  Country: None (occurrence: None)
  Receive Date: 20040604
  Receipt Date: 20040518
  Transmission Date: 20050107
  Serious: Yes (Disabling)
  Sender: FDA-Public Use
  Company Number: 3175

PATIENT
  Sex: Female

DRUGS (8)
  1. ONTAK [Suspect]
     Indication: MYCOSIS FUNGOIDES
     Dosage: 18 UG/KG.D Q3WKS IV
     Route: 042
     Dates: start: 20040430, end: 20010504
  2. ASPIRIN [Concomitant]
  3. GENTAMYCIN SULFATE [Concomitant]
  4. INSULIN [Concomitant]
  5. ISOPHANE INSULIN/INSULIN [Concomitant]
  6. LORATADINE [Concomitant]
  7. PROMETHAZINE [Concomitant]
  8. TEICOPLANIN [Concomitant]

REACTIONS (10)
  - BLINDNESS [None]
  - COLOUR BLINDNESS [None]
  - CSF LACTATE DEHYDROGENASE INCREASED [None]
  - CSF LYMPHOCYTE COUNT INCREASED [None]
  - CSF MONOCYTE COUNT POSITIVE [None]
  - CSF PROTEIN INCREASED [None]
  - CSF TEST ABNORMAL [None]
  - INFLAMMATION [None]
  - OPTIC NEUROPATHY [None]
  - VISUAL FIELD DEFECT [None]
